FAERS Safety Report 24963281 (Version 1)
Quarter: 2025Q1

REPORT INFORMATION
  Report Type: Spontaneous
  Country: CA (occurrence: US)
  Receive Date: 20250213
  Receipt Date: 20250213
  Transmission Date: 20250409
  Serious: Yes (Hospitalization)
  Sender: BEIGENE
  Company Number: CA-BEIGENE-BGN-2023-009615

PATIENT
  Age: 43 Year

DRUGS (26)
  1. BRUKINSA [Suspect]
     Active Substance: ZANUBRUTINIB
     Indication: Marginal zone lymphoma
     Dosage: 80 MILLIGRAM, BID
     Route: 065
  2. BRUKINSA [Suspect]
     Active Substance: ZANUBRUTINIB
     Dosage: 160 MILLIGRAM, BID
     Route: 065
  3. BRUKINSA [Suspect]
     Active Substance: ZANUBRUTINIB
     Dosage: 160 MILLIGRAM, BID
     Route: 065
  4. AMOXICILLIN\CLAVULANIC ACID [Concomitant]
     Active Substance: AMOXICILLIN\CLAVULANIC ACID
  5. MELATONIN [Concomitant]
     Active Substance: MELATONIN
  6. VITAMIN D3 [Concomitant]
     Active Substance: CHOLECALCIFEROL
  7. Vitamin k2 + d3 [Concomitant]
  8. FISH OIL [Concomitant]
     Active Substance: FISH OIL
  9. ZINC [Concomitant]
     Active Substance: ZINC
  10. MORPHINE [Concomitant]
     Active Substance: MORPHINE
  11. HYDROMORPHONE [Concomitant]
     Active Substance: HYDROMORPHONE
  12. CODEINE [Concomitant]
     Active Substance: CODEINE
  13. TYLENOL [Concomitant]
     Active Substance: ACETAMINOPHEN
  14. DIETARY SUPPLEMENT\RESVERATROL [Concomitant]
     Active Substance: DIETARY SUPPLEMENT\RESVERATROL
  15. CUMIN [Concomitant]
     Active Substance: CUMIN
  16. AZADIRACHTA INDICA BARK [Concomitant]
     Active Substance: AZADIRACHTA INDICA BARK
  17. BroccoGen 10 [Concomitant]
  18. SULFORAPHANE [Concomitant]
     Active Substance: SULFORAPHANE
  19. ALPHA LIPOIC ACID [Concomitant]
     Active Substance: .ALPHA.-LIPOIC ACID
  20. DIETARY SUPPLEMENT\HERBALS\MILK THISTLE [Concomitant]
     Active Substance: MILK THISTLE
  21. BLUE FLAG [Concomitant]
  22. SARSAPARILLA [Concomitant]
     Active Substance: SARSAPARILLA
  23. CODONOPSIS [Concomitant]
  24. MAGNESIUM GLUCONATE [Concomitant]
     Active Substance: MAGNESIUM GLUCONATE
  25. HERBALS\SPIRULINA [Concomitant]
     Active Substance: HERBALS\SPIRULINA
  26. WEST WHEAT GRASS [Concomitant]
     Active Substance: PASCOPYRUM SMITHII POLLEN

REACTIONS (5)
  - Incisional hernia [Unknown]
  - Cough [Unknown]
  - Petechiae [Unknown]
  - Platelet count decreased [Unknown]
  - Seroma [Unknown]
